FAERS Safety Report 7705101-8 (Version None)
Quarter: 2011Q3

REPORT INFORMATION
  Report Type: 
  Country: None (occurrence: None)
  Receive Date: 20110823
  Receipt Date: 20110818
  Transmission Date: 20111222
  Serious: Yes (Hospitalization)
  Sender: FDA-Public Use
  Company Number: JP-BRISTOL-MYERS SQUIBB COMPANY-15979610

PATIENT
  Sex: Female

DRUGS (2)
  1. ERBITUX [Suspect]
     Indication: COLON CANCER
     Dosage: 9AUG2011:2ND INF OF 3RD LINE TREATMENT STRENGTH:5MG/ML
     Route: 041
     Dates: start: 20110808
  2. IRINOTECAN HYDROCHLORIDE [Suspect]
     Indication: COLON CANCER
     Dosage: 9AUG2011:2ND INF OF 3RD LINE TREATMENT
     Route: 041
     Dates: start: 20110808

REACTIONS (1)
  - HEPATIC FUNCTION ABNORMAL [None]
